FAERS Safety Report 9554630 (Version 1)
Quarter: 2013Q3

REPORT INFORMATION
  Report Type: Spontaneous
  Country: TN (occurrence: TN)
  Receive Date: 20130925
  Receipt Date: 20130925
  Transmission Date: 20140515
  Serious: Yes (Death, Other)
  Sender: FDA-Public Use
  Company Number: TN-BAXTER-2013BAX037256

PATIENT
  Age: 25 Year
  Sex: Female

DRUGS (9)
  1. ENDOXAN 1G [Suspect]
     Indication: ANAPLASTIC LARGE-CELL LYMPHOMA
     Route: 065
  2. ENDOXAN 1G [Suspect]
     Route: 065
  3. DOXORUBICIN [Suspect]
     Indication: ANAPLASTIC LARGE-CELL LYMPHOMA
     Route: 065
  4. VINCRISTINE [Suspect]
     Indication: ANAPLASTIC LARGE-CELL LYMPHOMA
     Route: 065
  5. VINCRISTINE [Suspect]
     Route: 065
  6. PREDNISONE [Suspect]
     Indication: ANAPLASTIC LARGE-CELL LYMPHOMA
     Route: 065
  7. PREDNISONE [Suspect]
     Route: 065
  8. ADRIAMYCIN [Suspect]
     Indication: ANAPLASTIC LARGE-CELL LYMPHOMA
     Route: 065
  9. BLEOMYCIN [Suspect]
     Indication: ANAPLASTIC LARGE-CELL LYMPHOMA
     Route: 065

REACTIONS (3)
  - Neoplasm progression [Unknown]
  - Febrile neutropenia [Not Recovered/Not Resolved]
  - Septic shock [Fatal]
